FAERS Safety Report 17791862 (Version 1)
Quarter: 2020Q2

REPORT INFORMATION
  Report Type: Spontaneous
  Country: CG (occurrence: CG)
  Receive Date: 20200515
  Receipt Date: 20200515
  Transmission Date: 20200714
  Serious: Yes (Death, Other)
  Sender: FDA-Public Use
  Company Number: CG-BRISTOL-MYERS SQUIBB COMPANY-BMS-2019-003261

PATIENT
  Age: 35 Year
  Sex: Female

DRUGS (4)
  1. SPRYCEL [Suspect]
     Active Substance: DASATINIB
     Indication: CHRONIC MYELOID LEUKAEMIA
     Dosage: 70 MILLIGRAM, Q6MO
     Route: 065
     Dates: start: 2015
  2. SPRYCEL [Suspect]
     Active Substance: DASATINIB
     Indication: PRODUCT USED FOR UNKNOWN INDICATION
     Dosage: 70 MILLIGRAM, QD
     Route: 065
  3. SPRYCEL [Suspect]
     Active Substance: DASATINIB
     Indication: PRODUCT USED FOR UNKNOWN INDICATION
     Dosage: 70 MILLIGRAM, BID
     Route: 065
  4. SPRYCEL [Suspect]
     Active Substance: DASATINIB
     Indication: PRODUCT USED FOR UNKNOWN INDICATION
     Dosage: 100 MILLIGRAM
     Route: 065

REACTIONS (4)
  - Prescribed underdose [Unknown]
  - Maternal exposure during pregnancy [Recovered/Resolved]
  - Incorrect dose administered [Unknown]
  - Post abortion complication [Fatal]

NARRATIVE: CASE EVENT DATE: 20200320
